FAERS Safety Report 6164263-7 (Version None)
Quarter: 2009Q2

REPORT INFORMATION
  Report Type: 
  Country: None (occurrence: None)
  Receive Date: 20090422
  Receipt Date: 20090415
  Transmission Date: 20091009
  Serious: Yes (Hospitalization)
  Sender: FDA-Public Use
  Company Number: DE-EISAI INC.-E2090-00713-SPO-DE

PATIENT
  Sex: Male
  Weight: 62 kg

DRUGS (2)
  1. ZONEGRAN [Suspect]
     Indication: EPILEPSY
     Route: 048
     Dates: start: 20070101
  2. KEPPRA [Concomitant]

REACTIONS (1)
  - NEPHROLITHIASIS [None]
